FAERS Safety Report 6694526-8 (Version None)
Quarter: 2010Q2

REPORT INFORMATION
  Report Type: 
  Country: None (occurrence: None)
  Receive Date: 20100423
  Receipt Date: 20100421
  Transmission Date: 20101027
  Serious: Yes (Death)
  Sender: FDA-Public Use
  Company Number: JP-SANOFI-AVENTIS-2010SA023176

PATIENT
  Age: 84 Year
  Sex: Female
  Weight: 37 kg

DRUGS (6)
  1. PLAVIX [Suspect]
     Indication: ISCHAEMIC CEREBRAL INFARCTION
     Route: 048
     Dates: start: 20070301, end: 20070423
  2. ADALAT [Concomitant]
     Indication: HYPERTENSION
     Route: 048
     Dates: end: 20070423
  3. DIGOXIN [Concomitant]
     Dosage: 1 TABLET X1
     Route: 048
     Dates: end: 20070423
  4. VASOLAN [Concomitant]
     Dosage: 3 TABLETS X3
     Route: 048
     Dates: end: 20070423
  5. GASMOTIN [Concomitant]
     Dosage: 3 TABLETS X3
     Route: 048
     Dates: end: 20070423
  6. NEOPHYLLIN [Concomitant]
     Route: 048
     Dates: end: 20070423

REACTIONS (1)
  - DEATH [None]
